FAERS Safety Report 11555876 (Version 4)
Quarter: 2017Q3

REPORT INFORMATION
  Report Type: Spontaneous
  Country: US (occurrence: US)
  Receive Date: 20150925
  Receipt Date: 20170728
  Transmission Date: 20171127
  Serious: Yes (Other)
  Sender: FDA-Public Use
  Company Number: US-ASTRAZENECA-2011SE31739

PATIENT
  Age: 27146 Day
  Sex: Male

DRUGS (10)
  1. CRESTOR [Suspect]
     Active Substance: ROSUVASTATIN CALCIUM
     Indication: BLOOD CHOLESTEROL INCREASED
     Route: 048
     Dates: start: 200911
  2. BRILINTA [Suspect]
     Active Substance: TICAGRELOR
     Indication: ACUTE CORONARY SYNDROME
     Route: 048
     Dates: start: 20150311
  3. ASPIRIN. [Concomitant]
     Active Substance: ASPIRIN
     Indication: VASCULAR GRAFT
     Dates: start: 2007
  4. FLOMAX [Concomitant]
     Active Substance: TAMSULOSIN HYDROCHLORIDE
     Indication: DYSURIA
  5. CEPHALXIN [Concomitant]
     Indication: ILL-DEFINED DISORDER
  6. ATENOLOL. [Suspect]
     Active Substance: ATENOLOL
     Indication: ILL-DEFINED DISORDER
     Route: 048
  7. VITAMIN D3 [Concomitant]
     Active Substance: CHOLECALCIFEROL
     Indication: VITAMIN SUPPLEMENTATION
  8. BRILINTA [Suspect]
     Active Substance: TICAGRELOR
     Indication: STENT PLACEMENT
     Route: 048
     Dates: start: 20150311
  9. CRESTOR [Suspect]
     Active Substance: ROSUVASTATIN CALCIUM
     Indication: BLOOD CHOLESTEROL INCREASED
     Dosage: GENERIC ROSUVASTATIN, UNKNOWN DOSE AND FREQUENCY
     Route: 065
  10. FISH OIL [Concomitant]
     Active Substance: FISH OIL

REACTIONS (9)
  - Acute coronary syndrome [Unknown]
  - Vascular stent thrombosis [Unknown]
  - Muscle strain [Unknown]
  - Musculoskeletal discomfort [Not Recovered/Not Resolved]
  - Contusion [Unknown]
  - Blood urine present [Unknown]
  - Arthralgia [Unknown]
  - Drug ineffective [Unknown]
  - Blood cholesterol increased [Unknown]

NARRATIVE: CASE EVENT DATE: 20150315
